FAERS Safety Report 10486774 (Version 1)
Quarter: 2014Q3

REPORT INFORMATION
  Report Type: Spontaneous
  Country: US (occurrence: None)
  Receive Date: 20140930
  Receipt Date: 20140930
  Transmission Date: 20150326
  Serious: Yes (Hospitalization, Disabling)
  Sender: FDA-Public Use
  Company Number: None

PATIENT
  Age: 62 Year
  Sex: Female

DRUGS (1)
  1. CIPROFLOXACIN. [Suspect]
     Active Substance: CIPROFLOXACIN
     Indication: CYSTITIS
     Dates: start: 20110517, end: 20110710

REACTIONS (6)
  - Burning sensation [None]
  - Drug ineffective [None]
  - Hyperaesthesia [None]
  - Intervertebral disc protrusion [None]
  - Neuralgia [None]
  - Abasia [None]

NARRATIVE: CASE EVENT DATE: 20110524
